FAERS Safety Report 5722778-7 (Version None)
Quarter: 2008Q2

REPORT INFORMATION
  Report Type: 
  Country: None (occurrence: None)
  Receive Date: 20080429
  Receipt Date: 20080124
  Transmission Date: 20081010
  Serious: No
  Sender: FDA-Public Use
  Company Number: US-ASTRAZENECA-2008UW01776

PATIENT
  Age: 61 Year
  Sex: Female
  Weight: 86.2 kg

DRUGS (2)
  1. NEXIUM [Suspect]
     Route: 048
     Dates: start: 20060101
  2. TRIAMTERENE AND HYDROCHLOROTHIAZIDE [Concomitant]

REACTIONS (3)
  - ABDOMINAL DISTENSION [None]
  - ERUCTATION [None]
  - INTESTINAL FUNCTIONAL DISORDER [None]
